FAERS Safety Report 9016599 (Version 2)
Quarter: 2013Q1

REPORT INFORMATION
  Report Type: Spontaneous
  Country: US (occurrence: US)
  Receive Date: 20130117
  Receipt Date: 20130207
  Transmission Date: 20140127
  Serious: No
  Sender: FDA-Public Use
  Company Number: US-BIOGENIDEC-2013BI003484

PATIENT
  Age: 31 Year
  Sex: Female

DRUGS (1)
  1. TYSABRI [Suspect]
     Indication: MULTIPLE SCLEROSIS
     Route: 042
     Dates: start: 20070213

REACTIONS (8)
  - Gait disturbance [Not Recovered/Not Resolved]
  - Sensory disturbance [Recovered/Resolved]
  - Cough [Not Recovered/Not Resolved]
  - Nasal disorder [Not Recovered/Not Resolved]
  - General symptom [Not Recovered/Not Resolved]
  - Confusional state [Not Recovered/Not Resolved]
  - Drug effect decreased [Unknown]
  - Fatigue [Not Recovered/Not Resolved]
